FAERS Safety Report 5712736-0 (Version None)
Quarter: 2008Q2

REPORT INFORMATION
  Report Type: 
  Country: None (occurrence: None)
  Receive Date: 20080422
  Receipt Date: 20080410
  Transmission Date: 20081010
  Serious: Yes (Hospitalization)
  Sender: FDA-Public Use
  Company Number: FR-ROCHE-547908

PATIENT
  Age: 42 Year
  Sex: Female

DRUGS (11)
  1. VALIUM [Suspect]
     Route: 048
     Dates: start: 20071015, end: 20080120
  2. MEPRONIZINE [Suspect]
     Route: 048
     Dates: start: 20080107, end: 20080120
  3. MEPRONIZINE [Suspect]
     Route: 048
     Dates: start: 20080107, end: 20080120
  4. TERCIAN [Suspect]
     Route: 048
     Dates: start: 20080107, end: 20080120
  5. ANAFRANIL [Suspect]
     Route: 048
     Dates: start: 20071015, end: 20080120
  6. LYSANXIA [Concomitant]
     Dates: start: 20071001
  7. NOCTRAN [Concomitant]
     Dates: start: 20071001
  8. NOCTRAN [Concomitant]
     Dates: start: 20071001
  9. NOCTRAN [Concomitant]
     Dates: start: 20071001
  10. SULFARLEM [Concomitant]
     Dates: start: 20071001
  11. DIHYDROERGOTAMINE MESYLATE [Concomitant]
     Dates: start: 20071001

REACTIONS (4)
  - GAMMA-GLUTAMYLTRANSFERASE INCREASED [None]
  - HEADACHE [None]
  - NAUSEA [None]
  - TRANSAMINASES INCREASED [None]
